FAERS Safety Report 7215793-8 (Version None)
Quarter: 2011Q1

REPORT INFORMATION
  Report Type: 
  Country: None (occurrence: None)
  Receive Date: 20110107
  Receipt Date: 20110104
  Transmission Date: 20110831
  Serious: Yes (Hospitalization)
  Sender: FDA-Public Use
  Company Number: FR-PFIZER INC-2010181574

PATIENT
  Age: 62 Year
  Sex: Male
  Weight: 76 kg

DRUGS (10)
  1. NEXIUM [Concomitant]
  2. ZYVOX [Suspect]
     Indication: SEPSIS
     Dosage: 600 MG, 2X/DAY
     Route: 048
     Dates: start: 20101001, end: 20101007
  3. TAHOR [Concomitant]
  4. PARACETAMOL [Concomitant]
     Dosage: UNK
     Dates: end: 20101007
  5. CLONAZEPAM [Concomitant]
     Dosage: UNK
  6. CLAFORAN [Concomitant]
     Indication: SEPSIS
     Dosage: UNK
     Dates: start: 20100926, end: 20101001
  7. ATENOLOL [Concomitant]
  8. ZYLORIC ^FAES^ [Concomitant]
  9. ASPIRIN [Concomitant]
     Dosage: 1 DF, 1X/DAY
  10. GENTAMICIN [Concomitant]
     Indication: SEPSIS
     Dosage: UNK
     Dates: start: 20100926, end: 20101001

REACTIONS (1)
  - CYTOLYTIC HEPATITIS [None]
